FAERS Safety Report 15788306 (Version 2)
Quarter: 2019Q1

REPORT INFORMATION
  Report Type: Spontaneous
  Country: CA (occurrence: CA)
  Receive Date: 20190104
  Receipt Date: 20190110
  Transmission Date: 20190417
  Serious: Yes (Disabling, Other)
  Sender: FDA-Public Use
  Company Number: CA-STRIDES ARCOLAB LIMITED-2018SP010945

PATIENT
  Age: 62 Year
  Sex: Male

DRUGS (1)
  1. LIDOCAINE. [Suspect]
     Active Substance: LIDOCAINE
     Indication: ANAESTHESIA PROCEDURE
     Dosage: UNK

REACTIONS (7)
  - Macular oedema [Unknown]
  - Arteriovenous fistula [Recovered/Resolved]
  - Retinal ischaemia [Unknown]
  - Retinal haemorrhage [Recovered/Resolved]
  - Blindness [Unknown]
  - Retinal artery occlusion [Unknown]
  - Retinal vein occlusion [Unknown]
